FAERS Safety Report 18205831 (Version 1)
Quarter: 2020Q3

REPORT INFORMATION
  Report Type: Report from Study
  Country: US (occurrence: US)
  Receive Date: 20200828
  Receipt Date: 20200828
  Transmission Date: 20201103
  Serious: Yes (Other)
  Sender: FDA-Public Use
  Company Number: US-AUROBINDO-AUR-APL-2019-094099

PATIENT
  Sex: Male

DRUGS (1)
  1. METFORMIN [Suspect]
     Active Substance: METFORMIN HYDROCHLORIDE
     Indication: PRODUCT USED FOR UNKNOWN INDICATION
     Dosage: UNK
     Route: 048

REACTIONS (5)
  - Coma [Recovering/Resolving]
  - Ventricular arrhythmia [Recovering/Resolving]
  - Agitation [Recovering/Resolving]
  - Accidental exposure to product [Recovering/Resolving]
  - Metabolic acidosis [Recovering/Resolving]
